FAERS Safety Report 8583065-5 (Version None)
Quarter: 2012Q3

REPORT INFORMATION
  Report Type: 
  Country: None (occurrence: None)
  Receive Date: 20120727
  Receipt Date: 20120712
  Transmission Date: 20120928
  Serious: Yes (Death)
  Sender: FDA-Public Use
  Company Number: US-2011-10172

PATIENT
  Age: 65 Year
  Sex: Male

DRUGS (17)
  1. SANDIMMUNE [Suspect]
     Indication: IMMUNOSUPPRESSION
     Dosage: 100 MG MILLIGRAM(S), BID, INTRAVENOUS
     Route: 042
     Dates: start: 20071108, end: 20071205
  2. FILGRASTIM (FILGRASTIM) [Concomitant]
  3. CELLCEPT [Concomitant]
  4. URSO 250 [Concomitant]
  5. G-CSF-PRIMING-ARA-C (G-CSF-PRIMING-ARA-C) [Concomitant]
  6. MAXIPIME [Concomitant]
  7. EPADEL (EICOSAPENTAENOIC ACID ETHYL ESTER) [Concomitant]
  8. BUSULFEX [Suspect]
     Indication: STEM CELL TRANSPLANT
     Dosage: 45 MG MILLIGRAM(S),  INTRAVENOUS, 45 MG MILLIGRAM(S), QID, INTRAVENOUS
     Route: 042
     Dates: start: 20081104, end: 20081107
  9. FLUDARA [Concomitant]
  10. FAMOTIDINE [Concomitant]
  11. SOLDACTONE (POTASSIUM CANRENOATE) [Concomitant]
  12. ZOVIRAX [Concomitant]
  13. DIFLUCAN [Concomitant]
  14. HIBON (RIBOFLAVIN TETRABUTYRATE) [Concomitant]
  15. OMEGACIN (BIAPENEM) [Concomitant]
  16. NEUTROGIN (LENOGRASTIM) [Concomitant]
  17. NEUQUINON (UBIDECARENONE) [Concomitant]

REACTIONS (2)
  - THROMBOTIC MICROANGIOPATHY [None]
  - VENOOCCLUSIVE LIVER DISEASE [None]
